FAERS Safety Report 14862404 (Version 1)
Quarter: 2018Q2

REPORT INFORMATION
  Report Type: Spontaneous
  Country: US (occurrence: US)
  Receive Date: 20180508
  Receipt Date: 20180508
  Transmission Date: 20180711
  Serious: No
  Sender: FDA-Public Use
  Company Number: US-ALKERMES INC.-ALK-2017-001016

PATIENT
  Age: 53 Year
  Sex: Male
  Weight: 122.45 kg

DRUGS (3)
  1. AMBIEN [Suspect]
     Active Substance: ZOLPIDEM TARTRATE
     Indication: INSOMNIA
  2. VIVITROL [Suspect]
     Active Substance: NALTREXONE
     Indication: DRUG DEPENDENCE
     Dosage: 380 MG, QMO
     Route: 030
     Dates: start: 20170310, end: 20170411
  3. AMBIEN [Suspect]
     Active Substance: ZOLPIDEM TARTRATE
     Indication: MIGRAINE

REACTIONS (5)
  - Hypersensitivity [Unknown]
  - Migraine [Recovering/Resolving]
  - Insomnia [Not Recovered/Not Resolved]
  - Memory impairment [Unknown]
  - Somnambulism [Unknown]

NARRATIVE: CASE EVENT DATE: 2017
